FAERS Safety Report 12778986 (Version 1)
Quarter: 2016Q3

REPORT INFORMATION
  Report Type: Spontaneous
  Country: US (occurrence: US)
  Receive Date: 20160926
  Receipt Date: 20160926
  Transmission Date: 20161109
  Serious: No
  Sender: FDA-Public Use
  Company Number: US-JAZZ-2016-US-011408

PATIENT
  Age: 51 Year
  Sex: Female
  Weight: 99.77 kg

DRUGS (13)
  1. XYREM [Suspect]
     Active Substance: SODIUM OXYBATE
     Dosage: 2.75 G, BID
     Route: 048
     Dates: start: 201606
  2. VITAMIN D [Concomitant]
     Active Substance: CHOLECALCIFEROL
  3. ADDERALL [Concomitant]
     Active Substance: AMPHETAMINE ASPARTATE\AMPHETAMINE SULFATE\DEXTROAMPHETAMINE SACCHARATE\DEXTROAMPHETAMINE SULFATE
     Indication: ATTENTION DEFICIT/HYPERACTIVITY DISORDER
  4. VITAMIN B COMPLEX [Concomitant]
     Active Substance: CYANOCOBALAMIN\DEXPANTHENOL\NIACINAMIDE\PYRIDOXINE HYDROCHLORIDE\RIBOFLAVIN 5^-PHOSPHATE SODIUM\THIAMINE HYDROCHLORIDE\VITAMIN B COMPLEX
  5. VITAMIN C [Concomitant]
     Active Substance: ASCORBIC ACID
  6. XYREM [Suspect]
     Active Substance: SODIUM OXYBATE
     Indication: NARCOLEPSY
     Dosage: 2.25 G, BID
     Route: 048
     Dates: start: 201606, end: 201606
  7. MAGNESIUM OXIDE. [Concomitant]
     Active Substance: MAGNESIUM OXIDE
  8. SELENIUM [Concomitant]
     Active Substance: SELENIUM
  9. ALEVE [Concomitant]
     Active Substance: NAPROXEN SODIUM
  10. MULTIVITAMIN WITH MINERALS [Concomitant]
     Active Substance: MINERALS\VITAMINS
  11. IODINE. [Concomitant]
     Active Substance: IODINE
  12. BUPROPION HCL [Concomitant]
     Active Substance: BUPROPION HYDROCHLORIDE
  13. WELLBUTRIN [Concomitant]
     Active Substance: BUPROPION HYDROCHLORIDE
     Indication: DEPRESSION

REACTIONS (1)
  - Thirst [Not Recovered/Not Resolved]

NARRATIVE: CASE EVENT DATE: 201606
